FAERS Safety Report 14625897 (Version 1)
Quarter: 2018Q1

REPORT INFORMATION
  Report Type: Spontaneous
  Country: US (occurrence: US)
  Receive Date: 20180312
  Receipt Date: 20180312
  Transmission Date: 20180509
  Serious: Yes (Hospitalization)
  Sender: FDA-Public Use
  Company Number: US-SA-2018SA069804

PATIENT
  Sex: Male
  Weight: 10.2 kg

DRUGS (11)
  1. CEREZYME [Suspect]
     Active Substance: IMIGLUCERASE
     Indication: FABRY^S DISEASE
     Dosage: DOSE: 600 UNIT DOSE:58.83 UNIT(S)/KILOGRAM BODYWEIGHT
     Route: 041
  2. DIPHENHYDRAMINE. [Concomitant]
     Active Substance: DIPHENHYDRAMINE
     Indication: ANAPHYLACTIC REACTION
     Route: 048
     Dates: start: 20180110
  3. ATIVAN [Concomitant]
     Active Substance: LORAZEPAM
     Route: 048
     Dates: start: 20171128
  4. OMEPRAZOLE. [Concomitant]
     Active Substance: OMEPRAZOLE
     Route: 048
     Dates: start: 20171128
  5. ROBINUL [Concomitant]
     Active Substance: GLYCOPYRROLATE
     Route: 048
     Dates: start: 20171129
  6. KEPPRA [Concomitant]
     Active Substance: LEVETIRACETAM
     Route: 048
     Dates: start: 20171128
  7. NORMAL SALINE [Concomitant]
     Active Substance: SODIUM CHLORIDE
     Dosage: IV AS DIRECTED
     Route: 042
     Dates: start: 20180110
  8. ALBUTEROL. [Concomitant]
     Active Substance: ALBUTEROL
     Dosage: 1 VIAL VIA NEB AS NEEDED
     Dates: start: 20171128
  9. PULMICORT TURBUHALER [Concomitant]
     Active Substance: BUDESONIDE
     Dosage: 1 AMP VIA NEB TWICE DAILY
     Dates: start: 20171128
  10. HEPARIN [Concomitant]
     Active Substance: HEPARIN SODIUM
     Indication: FLUSHING
     Dosage: 100 U N/ML AS DIRECTED
     Route: 042
     Dates: start: 20180110
  11. EPINEPHRINE. [Concomitant]
     Active Substance: EPINEPHRINE
     Indication: ANAPHYLACTIC REACTION
     Route: 030
     Dates: start: 20180110

REACTIONS (1)
  - Parainfluenzae virus infection [Recovered/Resolved]

NARRATIVE: CASE EVENT DATE: 20180223
